FAERS Safety Report 5402718-0 (Version None)
Quarter: 2007Q3

REPORT INFORMATION
  Report Type: 
  Country: None (occurrence: None)
  Receive Date: 20070801
  Receipt Date: 20070727
  Transmission Date: 20080115
  Serious: Yes (Other)
  Sender: FDA-Public Use
  Company Number: D0054142A

PATIENT
  Age: 50 Year
  Sex: Female

DRUGS (1)
  1. VIANI [Suspect]
     Route: 055

REACTIONS (2)
  - JAW FRACTURE [None]
  - PATHOLOGICAL FRACTURE [None]
